FAERS Safety Report 4956429-6 (Version None)
Quarter: 2006Q1

REPORT INFORMATION
  Report Type: 
  Country: None (occurrence: None)
  Receive Date: 20060329
  Receipt Date: 20060320
  Transmission Date: 20060701
  Serious: Yes (Hospitalization)
  Sender: FDA-Public Use
  Company Number: JP-JNJFOC-20060303109

PATIENT
  Sex: Female

DRUGS (14)
  1. CRAVIT [Suspect]
     Indication: PYELONEPHRITIS ACUTE
     Route: 048
     Dates: start: 20060123, end: 20060201
  2. CALONAL [Interacting]
     Route: 048
     Dates: start: 20060120, end: 20060201
  3. CALONAL [Interacting]
     Indication: PYREXIA
     Route: 048
     Dates: start: 20060120, end: 20060201
  4. LIASOPHIN [Concomitant]
     Route: 042
     Dates: start: 20060123, end: 20060124
  5. AMINOFLUID [Concomitant]
     Route: 042
  6. AMINOFLUID [Concomitant]
     Route: 042
  7. AMINOFLUID [Concomitant]
     Route: 042
  8. AMLODIN [Concomitant]
     Indication: HYPERTENSION
     Route: 048
     Dates: start: 20060119, end: 20060201
  9. DIOVAN [Concomitant]
     Indication: HYPERTENSION
     Route: 048
     Dates: start: 20060119, end: 20060201
  10. BUFFERIN [Concomitant]
  11. BUFFERIN [Concomitant]
  12. BUFFERIN [Concomitant]
  13. LIPITOR [Concomitant]
     Indication: HYPERLIPIDAEMIA
     Route: 048
     Dates: start: 20060119, end: 20060201
  14. SODIUM CHLORIDE [Concomitant]
     Route: 042
     Dates: start: 20060123

REACTIONS (2)
  - DRUG INTERACTION [None]
  - GASTRIC ULCER HAEMORRHAGE [None]
